FAERS Safety Report 8709812 (Version 2)
Quarter: 2012Q4

REPORT INFORMATION
  Report Type: 
  Country: US (occurrence: US)
  Receive Date: 20120806
  Receipt Date: 20120912
  Transmission Date: 20130627
  Serious: No
  Sender: FDA-Public Use
  Company Number: US-B.I. PHARMACEUTICALS,INC./RIDGEFIELD-2012-BP-17162BP

PATIENT
  Age: 66 Year
  Sex: Female
  Weight: 83.45 kg

DRUGS (3)
  1. SPIRIVA [Suspect]
     Indication: CHRONIC OBSTRUCTIVE PULMONARY DISEASE
     Dosage: 18 mcg
     Route: 055
     Dates: start: 20120723, end: 20120803
  2. SINGULAIR [Concomitant]
     Indication: CHRONIC OBSTRUCTIVE PULMONARY DISEASE
     Route: 048
  3. SYNTHROID [Concomitant]
     Indication: HYPOTHYROIDISM
     Dosage: 112 mcg
     Route: 048

REACTIONS (4)
  - Oral discomfort [Not Recovered/Not Resolved]
  - Drug ineffective [Recovered/Resolved]
  - Dry mouth [Recovered/Resolved]
  - Dysphagia [Recovered/Resolved]
